FAERS Safety Report 7779698-6 (Version None)
Quarter: 2011Q3

REPORT INFORMATION
  Report Type: 
  Country: None (occurrence: None)
  Receive Date: 20110927
  Receipt Date: 20110920
  Transmission Date: 20111222
  Serious: Yes (Other)
  Sender: FDA-Public Use
  Company Number: JP-PFIZER INC-2011223248

PATIENT
  Age: 29 Year
  Sex: Female

DRUGS (3)
  1. CLONAZEPAM [Suspect]
     Dosage: 20 TABLETS
  2. VIAGRA [Suspect]
     Dosage: 5 TABLETS
  3. AMITRIPTYLINE HCL [Suspect]
     Dosage: 10 TABLETS

REACTIONS (2)
  - MULTIPLE DRUG OVERDOSE INTENTIONAL [None]
  - DEPRESSED LEVEL OF CONSCIOUSNESS [None]
